FAERS Safety Report 6812717-X (Version None)
Quarter: 2010Q3

REPORT INFORMATION
  Report Type: 
  Country: None (occurrence: None)
  Receive Date: 20100701
  Receipt Date: 20100618
  Transmission Date: 20110219
  Serious: Yes (Hospitalization)
  Sender: FDA-Public Use
  Company Number: A0864338A

PATIENT
  Age: 54 Year
  Sex: Male

DRUGS (11)
  1. AVANDIA [Suspect]
     Indication: DIABETES MELLITUS
     Dosage: 8MG PER DAY
     Route: 048
     Dates: start: 19991001, end: 20081001
  2. ASPIRIN [Concomitant]
     Dosage: 81MG PER DAY
  3. INDOCIN [Concomitant]
  4. FERROUS SULFATE [Concomitant]
  5. CAPTOPRIL [Concomitant]
  6. AVALIDE [Concomitant]
  7. LASIX [Concomitant]
  8. ZAROXOLYN [Concomitant]
  9. VASOTEC [Concomitant]
  10. CLONIDINE [Concomitant]
  11. INSULIN [Concomitant]

REACTIONS (6)
  - CARDIAC FAILURE CONGESTIVE [None]
  - CORONARY ARTERY DISEASE [None]
  - DYSPNOEA [None]
  - GAIT DISTURBANCE [None]
  - RENAL FAILURE [None]
  - SUBENDOCARDIAL ISCHAEMIA [None]
